FAERS Safety Report 6598799-1 (Version None)
Quarter: 2010Q1

REPORT INFORMATION
  Report Type: 
  Country: None (occurrence: None)
  Receive Date: 20100224
  Receipt Date: 20100209
  Transmission Date: 20100710
  Serious: Yes (Other)
  Sender: FDA-Public Use
  Company Number: DE-NOVOPROD-304241

PATIENT
  Sex: Female
  Weight: 42.7 kg

DRUGS (1)
  1. NORDITROPIN NORDIFLEX [Suspect]
     Indication: DRUG USE FOR UNKNOWN INDICATION
     Dosage: UNK
     Route: 058
     Dates: start: 20091201, end: 20100206

REACTIONS (4)
  - FACE OEDEMA [None]
  - HEADACHE [None]
  - NAUSEA [None]
  - RASH GENERALISED [None]
